FAERS Safety Report 8069575-8 (Version None)
Quarter: 2012Q1

REPORT INFORMATION
  Report Type: 
  Country: None (occurrence: None)
  Receive Date: 20120125
  Receipt Date: 20120118
  Transmission Date: 20120608
  Serious: Yes (Other)
  Sender: FDA-Public Use
  Company Number: FR-JNJFOC-20111207876

PATIENT
  Age: 53 Year
  Sex: Male

DRUGS (4)
  1. OMEPRAZOLE [Concomitant]
     Route: 065
  2. ASPEGIC 325 [Concomitant]
     Route: 065
  3. TOPIRAMATE [Suspect]
     Indication: EPILEPSY
     Dosage: DURING SEVERAL YEARS
     Route: 048
  4. PROPRANOLOL [Concomitant]
     Route: 065

REACTIONS (2)
  - ARRHYTHMIA [None]
  - DYSPNOEA [None]
